FAERS Safety Report 4343870-8 (Version None)
Quarter: 2004Q2

REPORT INFORMATION
  Report Type: 
  Country: None (occurrence: None)
  Receive Date: 20040419
  Receipt Date: 20040407
  Transmission Date: 20050107
  Serious: Yes (Death)
  Sender: FDA-Public Use
  Company Number: GB-JNJFOC-20040401255

PATIENT
  Age: 57 Year
  Sex: Female

DRUGS (16)
  1. REMICADE [Suspect]
     Indication: RHEUMATOID ARTHRITIS
     Dosage: 330 MG, INTRAVENOUS
     Route: 042
     Dates: start: 20030909, end: 20040403
  2. METHOTREXATE [Concomitant]
  3. HYDROXYCHLOROQUINE SULFATE [Concomitant]
  4. ALENDRONATE (ALENDRONATE SODIUM) [Concomitant]
  5. CO-CODAMOL (PANADEINE CO) [Concomitant]
  6. PREDNISOLONE [Concomitant]
  7. LEFLUNOMIDE (LEFLUNOMIDE) [Concomitant]
  8. FOLIC ACID [Concomitant]
  9. FUROSEMIDE [Concomitant]
  10. FLUOXETINE [Concomitant]
  11. CODEINE (CODEINE) [Concomitant]
  12. ATENOLOL [Concomitant]
  13. ROFECOXIB [Concomitant]
  14. LANSOPRAZOLE [Concomitant]
  15. TEMAZEPAM [Concomitant]
  16. DIHYDROCODEINE (DIHYDROCODEINE) [Concomitant]

REACTIONS (1)
  - INTESTINAL ISCHAEMIA [None]
